FAERS Safety Report 6566849-4 (Version None)
Quarter: 2010Q1

REPORT INFORMATION
  Report Type: 
  Country: None (occurrence: None)
  Receive Date: 20100202
  Receipt Date: 20100126
  Transmission Date: 20100710
  Serious: Yes (Disabling)
  Sender: FDA-Public Use
  Company Number: B0611861A

PATIENT
  Sex: Female

DRUGS (4)
  1. RELENZA [Suspect]
     Indication: INFLUENZA
     Dosage: 10MG TWICE PER DAY
     Route: 055
     Dates: start: 20091202, end: 20091202
  2. LOXONIN [Concomitant]
     Indication: PSYCHOSOMATIC DISEASE
     Route: 048
  3. UNKNOWN DRUG [Concomitant]
     Indication: PSYCHOSOMATIC DISEASE
     Route: 048
  4. ATARAX [Concomitant]
     Indication: PSYCHOSOMATIC DISEASE
     Route: 048

REACTIONS (5)
  - ABNORMAL BEHAVIOUR [None]
  - BODY TEMPERATURE INCREASED [None]
  - CONFUSIONAL STATE [None]
  - FEELING ABNORMAL [None]
  - HEADACHE [None]
